FAERS Safety Report 4359792-2 (Version None)
Quarter: 2004Q2

REPORT INFORMATION
  Report Type: 
  Country: None (occurrence: None)
  Receive Date: 20040518
  Receipt Date: 20040421
  Transmission Date: 20050107
  Serious: Yes (Hospitalization, Other)
  Sender: FDA-Public Use
  Company Number: FR-GLAXOSMITHKLINE-B0331375A

PATIENT
  Age: 11 Year
  Sex: Female
  Weight: 60 kg

DRUGS (3)
  1. ZOVIRAX [Suspect]
     Indication: MENINGITIS
     Dosage: 800MG THREE TIMES PER DAY
     Route: 042
     Dates: start: 20020921, end: 20020925
  2. QUININE [Concomitant]
     Route: 042
     Dates: start: 20020921, end: 20020925
  3. GARDENAL [Concomitant]
     Indication: CONVULSION
     Dosage: 100MG PER DAY
     Route: 042
     Dates: start: 20020921

REACTIONS (3)
  - INJECTION SITE EXTRAVASATION [None]
  - SKIN GRAFT [None]
  - SKIN NECROSIS [None]
